FAERS Safety Report 9980946 (Version 5)
Quarter: 2016Q3

REPORT INFORMATION
  Report Type: Spontaneous
  Country: US (occurrence: US)
  Receive Date: 20140307
  Receipt Date: 20160801
  Transmission Date: 20161109
  Serious: No
  Sender: FDA-Public Use
  Company Number: US-PFIZER INC-2014065560

PATIENT
  Age: 64 Year
  Sex: Female

DRUGS (4)
  1. LYRICA [Suspect]
     Active Substance: PREGABALIN
     Dosage: UNK
  2. NEURONTIN [Concomitant]
     Active Substance: GABAPENTIN
     Dosage: UNK
  3. DEPO-ESTRADIOL [Concomitant]
     Active Substance: ESTRADIOL CYPIONATE
     Dosage: 0.5 MG, 1X/DAY (1CC ONE TIME @ MO)
     Route: 030
  4. PREGABALIN. [Suspect]
     Active Substance: PREGABALIN

REACTIONS (1)
  - Drug hypersensitivity [Unknown]
